FAERS Safety Report 19002914 (Version 2)
Quarter: 2021Q1

REPORT INFORMATION
  Report Type: Spontaneous
  Country: IT (occurrence: IT)
  Receive Date: 20210312
  Receipt Date: 20210318
  Transmission Date: 20210420
  Serious: Yes (Death)
  Sender: FDA-Public Use
  Company Number: IT-ROCHE-2788811

PATIENT
  Sex: Male
  Weight: 48 kg

DRUGS (4)
  1. TECENTRIQ [Suspect]
     Active Substance: ATEZOLIZUMAB
     Indication: LUNG ADENOCARCINOMA
     Dosage: LAST ADMINISTRATION ON 21 JANUARY 2021
     Route: 041
     Dates: start: 20210115
  2. PEMETREXED. [Concomitant]
     Active Substance: PEMETREXED
     Dates: start: 202005
  3. CISPLATIN. [Concomitant]
     Active Substance: CISPLATIN
     Dates: start: 202005
  4. ZOLEDRONIC ACID [Concomitant]
     Active Substance: ZOLEDRONIC ACID
     Dates: start: 202005

REACTIONS (2)
  - Anaemia [Unknown]
  - Disease progression [Fatal]
